FAERS Safety Report 8222296-0 (Version None)
Quarter: 2012Q1

REPORT INFORMATION
  Report Type: 
  Country: None (occurrence: None)
  Receive Date: 20120320
  Receipt Date: 20120312
  Transmission Date: 20120608
  Serious: Yes (Other)
  Sender: FDA-Public Use
  Company Number: JP-GLAXOSMITHKLINE-B0787105A

PATIENT
  Age: 63 Year

DRUGS (3)
  1. ALKERAN [Suspect]
     Indication: MULTIPLE MYELOMA
     Route: 042
  2. BORTEZOMIB [Suspect]
     Route: 065
  3. DEXAMETHASONE [Concomitant]
     Route: 065

REACTIONS (3)
  - MUCOUS MEMBRANE DISORDER [None]
  - ENTEROCOLITIS HAEMORRHAGIC [None]
  - ILEUS PARALYTIC [None]
